FAERS Safety Report 7833624-X (Version None)
Quarter: 2011Q4

REPORT INFORMATION
  Report Type: 
  Country: None (occurrence: None)
  Receive Date: 20111020
  Receipt Date: 20111006
  Transmission Date: 20120403
  Serious: Yes (Life-Threatening, Hospitalization, Other)
  Sender: FDA-Public Use
  Company Number: 2011PV000052

PATIENT
  Age: 18 Year
  Sex: Male

DRUGS (4)
  1. SEPTRA [Concomitant]
  2. ALLOPURINOL [Concomitant]
  3. DEPOCYT [Suspect]
     Indication: METASTASES TO MENINGES
     Dosage: 50 MG;INTH
     Route: 037
     Dates: start: 20110526, end: 20110905
  4. ACYCLOVIR [Concomitant]

REACTIONS (4)
  - INTRACRANIAL PRESSURE INCREASED [None]
  - CONVULSION [None]
  - ARACHNOIDITIS [None]
  - PAPILLOEDEMA [None]
